FAERS Safety Report 4452943-0 (Version None)
Quarter: 2004Q3

REPORT INFORMATION
  Report Type: 
  Country: None (occurrence: None)
  Receive Date: 20040916
  Receipt Date: 20040906
  Transmission Date: 20050211
  Serious: Yes (Other)
  Sender: FDA-Public Use
  Company Number: 2004US001076

PATIENT
  Sex: Female

DRUGS (3)
  1. PROGRAF [Suspect]
     Indication: LIVER TRANSPLANT
  2. THYMOGLOBULIN [Suspect]
     Dosage: 1.50 MG/KG
  3. MYCOPHENOLATE MOFETIL (MYCOPHENOLATE MOFETIL) [Suspect]
     Indication: IMMUNOSUPPRESSION
     Dosage: 1000.00 MG, BID

REACTIONS (3)
  - CHOLANGITIS SCLEROSING [None]
  - IMMUNOSUPPRESSANT DRUG LEVEL DECREASED [None]
  - LIVER TRANSPLANT REJECTION [None]
